FAERS Safety Report 13658535 (Version 1)
Quarter: 2017Q2

REPORT INFORMATION
  Report Type: Spontaneous
  Country: US (occurrence: US)
  Receive Date: 20170615
  Receipt Date: 20170615
  Transmission Date: 20170830
  Serious: Yes (Hospitalization)
  Sender: FDA-Public Use
  Company Number: None

PATIENT
  Sex: Male

DRUGS (10)
  1. ADCIRCA [Suspect]
     Active Substance: TADALAFIL
     Indication: PULMONARY ARTERIAL HYPERTENSION
     Route: 048
     Dates: start: 20141007
  2. MOVANTIK [Concomitant]
     Active Substance: NALOXEGOL OXALATE
  3. SIMVASTATIN. [Concomitant]
     Active Substance: SIMVASTATIN
  4. DIOVAN [Concomitant]
     Active Substance: VALSARTAN
  5. XARELTO [Concomitant]
     Active Substance: RIVAROXABAN
  6. KLOR-CON [Concomitant]
     Active Substance: POTASSIUM CHLORIDE
  7. OPSUMIT [Concomitant]
     Active Substance: MACITENTAN
  8. OMEPRAZOLE. [Concomitant]
     Active Substance: OMEPRAZOLE
  9. FUROSEMIDE. [Concomitant]
     Active Substance: FUROSEMIDE
  10. NORCO [Concomitant]
     Active Substance: ACETAMINOPHEN\HYDROCODONE BITARTRATE

REACTIONS (1)
  - Haemoglobin decreased [None]
